FAERS Safety Report 4286238-5 (Version None)
Quarter: 2004Q1

REPORT INFORMATION
  Report Type: 
  Country: None (occurrence: None)
  Receive Date: 20040205
  Receipt Date: 20040205
  Transmission Date: 20041129
  Serious: No
  Sender: FDA-Public Use
  Company Number: None

PATIENT
  Age: 24 Year
  Sex: Female
  Weight: 114 kg

DRUGS (10)
  1. VORICONAZOLE TABLETS (VFEND, PFIZER) 200 MG [Suspect]
     Indication: HISTOPLASMOSIS
     Dosage: 200 MG PO BID
     Route: 048
     Dates: start: 20030616, end: 20030725
  2. VORICONAZOLE TABLETS (VFEND, PFIZER) 200 MG [Suspect]
     Indication: LYMPHADENITIS
     Dosage: 200 MG PO BID
     Route: 048
     Dates: start: 20030616, end: 20030725
  3. ANUSOL [Concomitant]
  4. DESOGEN [Concomitant]
  5. LANSOPRAZOE [Concomitant]
  6. TOPROL-XL [Concomitant]
  7. CEPHALEXIN [Concomitant]
  8. IBUPROFEN [Concomitant]
  9. PAROXETINE [Concomitant]
  10. SENNA [Concomitant]

REACTIONS (5)
  - HEADACHE [None]
  - NAUSEA [None]
  - OPTIC NEURITIS RETROBULBAR [None]
  - VISUAL FIELD DEFECT [None]
  - VOMITING [None]
